FAERS Safety Report 19350006 (Version 1)
Quarter: 2021Q2

REPORT INFORMATION
  Report Type: Spontaneous
  Country: US (occurrence: US)
  Receive Date: 20210601
  Receipt Date: 20210601
  Transmission Date: 20210717
  Serious: No
  Sender: FDA-Public Use
  Company Number: None

PATIENT
  Age: 52 Year
  Sex: Female
  Weight: 90 kg

DRUGS (8)
  1. VITAMIN B COMPLEX [Concomitant]
     Active Substance: CYANOCOBALAMIN\DEXPANTHENOL\NIACINAMIDE\PYRIDOXINE HYDROCHLORIDE\RIBOFLAVIN 5^-PHOSPHATE SODIUM\THIAMINE HYDROCHLORIDE\VITAMIN B COMPLEX
  2. MAGNESIUM [Concomitant]
     Active Substance: MAGNESIUM
  3. NP THYROID [Suspect]
     Active Substance: LEVOTHYROXINE\LIOTHYRONINE
     Indication: HYPOTHYROIDISM
     Dosage: ?          QUANTITY:1 TABLET(S);?
     Route: 048
     Dates: start: 20210404, end: 20210530
  4. ZINC. [Concomitant]
     Active Substance: ZINC
  5. VITAMIN D3, K2,  C [Concomitant]
  6. DIM [Concomitant]
  7. PROGESTERONE 600MG [Concomitant]
  8. ADRENAL SUPPORT [Concomitant]
     Active Substance: HOMEOPATHICS

REACTIONS (1)
  - Lethargy [None]

NARRATIVE: CASE EVENT DATE: 20210520
